FAERS Safety Report 4767742-X (Version None)
Quarter: 2005Q3

REPORT INFORMATION
  Report Type: 
  Country: None (occurrence: None)
  Receive Date: 20050912
  Receipt Date: 20050831
  Transmission Date: 20060218
  Serious: Yes (Life-Threatening, Other)
  Sender: FDA-Public Use
  Company Number: 430020M04DEU

PATIENT
  Age: 41 Year
  Sex: Female

DRUGS (5)
  1. RALENOVA (MITOXANTRONE HYDROCHLORIDE) [Suspect]
     Indication: MULTIPLE SCLEROSIS
     Dosage: SEE IMAGE
     Route: 042
     Dates: start: 20010608, end: 20010608
  2. RALENOVA (MITOXANTRONE HYDROCHLORIDE) [Suspect]
     Indication: MULTIPLE SCLEROSIS
     Dosage: SEE IMAGE
     Route: 042
     Dates: start: 20010928, end: 20010928
  3. RALENOVA (MITOXANTRONE HYDROCHLORIDE) [Suspect]
     Indication: MULTIPLE SCLEROSIS
     Dosage: SEE IMAGE
     Route: 042
     Dates: start: 20020517, end: 20020201
  4. RALENOVA (MITOXANTRONE HYDROCHLORIDE) [Suspect]
     Indication: MULTIPLE SCLEROSIS
     Dosage: SEE IMAGE
     Route: 042
     Dates: start: 20020517, end: 20020517
  5. RALENOVA (MITOXANTRONE HYDROCHLORIDE) [Suspect]
     Indication: MULTIPLE SCLEROSIS
     Dosage: SEE IMAGE
     Route: 042
     Dates: start: 20020820, end: 20020820

REACTIONS (4)
  - ACUTE PROMYELOCYTIC LEUKAEMIA [None]
  - BONE MARROW TRANSPLANT [None]
  - PANCYTOPENIA [None]
  - VAGINAL HAEMORRHAGE [None]
